FAERS Safety Report 22117988 (Version 2)
Quarter: 2023Q2

REPORT INFORMATION
  Report Type: Spontaneous
  Country: US (occurrence: US)
  Receive Date: 20230321
  Receipt Date: 20230413
  Transmission Date: 20230722
  Serious: Yes (Hospitalization)
  Sender: FDA-Public Use
  Company Number: US-SA-SAC20230317001176

PATIENT
  Age: 66 Year
  Sex: Female

DRUGS (1)
  1. KEVZARA [Suspect]
     Active Substance: SARILUMAB
     Indication: Giant cell arteritis
     Dosage: 200 MG, QOW
     Route: 058

REACTIONS (3)
  - Acarodermatitis [Unknown]
  - Hospitalisation [Unknown]
  - Product use in unapproved indication [Unknown]
